FAERS Safety Report 21719804 (Version 1)
Quarter: 2022Q4

REPORT INFORMATION
  Report Type: Spontaneous
  Country: US (occurrence: US)
  Receive Date: 20221213
  Receipt Date: 20221213
  Transmission Date: 20230112
  Serious: Yes (Hospitalization, Other)
  Sender: FDA-Public Use
  Company Number: US-drreddys-LIT/USA/22/0158118

PATIENT
  Age: 49 Year
  Sex: Male

DRUGS (3)
  1. DOBUTAMINE HYDROCHLORIDE [Suspect]
     Active Substance: DOBUTAMINE HYDROCHLORIDE
     Indication: Product used for unknown indication
     Dosage: 5 MCG/KG/MIN
  2. EPINEPHRINE [Concomitant]
     Active Substance: EPINEPHRINE
     Indication: Product used for unknown indication
  3. NOREPINEPHRINE [Concomitant]
     Active Substance: NOREPINEPHRINE
     Indication: Product used for unknown indication

REACTIONS (5)
  - Acute kidney injury [Recovered/Resolved]
  - Ischaemic hepatitis [Recovered/Resolved]
  - Lactic acidosis [Recovered/Resolved]
  - Condition aggravated [Recovered/Resolved]
  - Hypotension [Recovered/Resolved]
